FAERS Safety Report 25495837 (Version 1)
Quarter: 2025Q2

REPORT INFORMATION
  Report Type: Spontaneous
  Country: US (occurrence: US)
  Receive Date: 20250630
  Receipt Date: 20250630
  Transmission Date: 20250717
  Serious: No
  Sender: MERCK SHARP & DOHME LLC
  Company Number: US-009507513-2301409

PATIENT
  Age: 77 Year
  Sex: Female

DRUGS (1)
  1. DIFICID [Suspect]
     Active Substance: FIDAXOMICIN

REACTIONS (2)
  - Diarrhoea [Unknown]
  - Hypoacusis [Unknown]
